FAERS Safety Report 6673197-0 (Version None)
Quarter: 2010Q2

REPORT INFORMATION
  Report Type: 
  Country: None (occurrence: None)
  Receive Date: 20100408
  Receipt Date: 20100405
  Transmission Date: 20101027
  Serious: Yes (Hospitalization)
  Sender: FDA-Public Use
  Company Number: US-MERCK-1003USA02080

PATIENT
  Age: 82 Year
  Sex: Female
  Weight: 61 kg

DRUGS (6)
  1. FOSAMAX PLUS D [Suspect]
     Indication: OSTEOPOROSIS PROPHYLAXIS
     Route: 048
     Dates: start: 19990401, end: 20100306
  2. MULTIVITAMIN [Concomitant]
     Indication: RASH MACULAR
     Route: 048
  3. SOTALOL HYDROCHLORIDE [Concomitant]
     Indication: HEART RATE IRREGULAR
     Route: 048
  4. OMEGA-3 MARINE TRIGLYCERIDES [Concomitant]
     Indication: CORONARY ARTERY DISEASE
     Route: 048
  5. CALCIUM (UNSPECIFIED) [Concomitant]
     Indication: OSTEOPOROSIS
     Route: 048
  6. FLAXSEED [Concomitant]
     Indication: CORONARY ARTERY DISEASE
     Route: 048

REACTIONS (3)
  - FEMUR FRACTURE [None]
  - PAIN IN EXTREMITY [None]
  - PAIN IN JAW [None]
